FAERS Safety Report 18588410 (Version 1)
Quarter: 2020Q4

REPORT INFORMATION
  Report Type: Spontaneous
  Country: US (occurrence: US)
  Receive Date: 20201207
  Receipt Date: 20201207
  Transmission Date: 20210114
  Serious: No
  Sender: FDA-Public Use
  Company Number: US-SIGMAPHARM LABORATORIES, LLC-2020SIG00062

PATIENT
  Sex: Female

DRUGS (3)
  1. LEVOTHYROXINE (UNKNOWN MFR) [Suspect]
     Active Substance: LEVOTHYROXINE
  2. LIOTHYRONINE SODIUM. [Suspect]
     Active Substance: LIOTHYRONINE SODIUM
     Indication: HYPERTHYROIDISM
     Dosage: 25 ?G, 1X/DAY
     Dates: start: 202001, end: 202005
  3. LIOTHYRONINE SODIUM. [Suspect]
     Active Substance: LIOTHYRONINE SODIUM
     Indication: HYPERTHYROIDISM
     Dosage: 5 ?G, 1X/DAY
     Dates: start: 202001, end: 202005

REACTIONS (3)
  - Product use in unapproved indication [Recovered/Resolved]
  - Reaction to excipient [Unknown]
  - Coeliac disease [Unknown]

NARRATIVE: CASE EVENT DATE: 2020
